FAERS Safety Report 19171103 (Version 1)
Quarter: 2021Q2

REPORT INFORMATION
  Report Type: Spontaneous
  Country: US (occurrence: US)
  Receive Date: 20210422
  Receipt Date: 20210422
  Transmission Date: 20210717
  Serious: No
  Sender: FDA-Public Use
  Company Number: US-SA-2021SA132714

PATIENT
  Age: 25 Year
  Sex: Female

DRUGS (1)
  1. DUPIXENT [Suspect]
     Active Substance: DUPILUMAB
     Indication: DERMATITIS ATOPIC
     Dosage: UNK
     Route: 058

REACTIONS (5)
  - Eczema [Unknown]
  - Dry skin [Unknown]
  - Skin fissures [Unknown]
  - Product dose omission issue [Unknown]
  - Skin exfoliation [Unknown]

NARRATIVE: CASE EVENT DATE: 202104
